FAERS Safety Report 4657875-0 (Version None)
Quarter: 2005Q2

REPORT INFORMATION
  Report Type: 
  Country: None (occurrence: None)
  Receive Date: 20050428
  Receipt Date: 20050325
  Transmission Date: 20051028
  Serious: No
  Sender: FDA-Public Use
  Company Number: ZICO001200

PATIENT
  Sex: Female

DRUGS (1)
  1. PRIALT [Suspect]
     Indication: PAIN
     Dosage: 2.4 MCG/DAY INTRATHECAL
     Route: 037
     Dates: start: 20050322, end: 20050324

REACTIONS (1)
  - RASH GENERALISED [None]
